FAERS Safety Report 15824977 (Version 2)
Quarter: 2019Q1

REPORT INFORMATION
  Report Type: Spontaneous
  Country: JP (occurrence: JP)
  Receive Date: 20190115
  Receipt Date: 20190130
  Transmission Date: 20190417
  Serious: Yes (Other)
  Sender: FDA-Public Use
  Company Number: JP-ABBVIE-19P-087-2625518-00

PATIENT
  Sex: Male

DRUGS (1)
  1. LEUPLIN SR [Suspect]
     Active Substance: LEUPROLIDE ACETATE
     Indication: PROSTATE CANCER
     Dosage: 11.25 MILLIGRAM, Q3MONTHS, INJECTION KIT
     Route: 058

REACTIONS (1)
  - Femur fracture [Unknown]

NARRATIVE: CASE EVENT DATE: 20190101
